FAERS Safety Report 9185255 (Version 2)
Quarter: 2013Q2

REPORT INFORMATION
  Report Type: Spontaneous
  Country: US (occurrence: None)
  Receive Date: 20130321
  Receipt Date: 20130515
  Transmission Date: 20140414
  Serious: Yes (Death)
  Sender: FDA-Public Use
  Company Number: UTC-030207

PATIENT
  Age: 61 Year
  Sex: Female
  Weight: 61.2 kg

DRUGS (1)
  1. TYVASO (6 MICROGRAM, AEROSOL FOR INHALATION) (TREPROSTINIL SODIUM) [Suspect]
     Indication: COR PULMONALE CHRONIC
     Dosage: 18 TO 54 MICROGRAMS (4 IN 1 D), INHALATION
     Route: 055
     Dates: start: 20110602

REACTIONS (2)
  - Respiratory failure [None]
  - Condition aggravated [None]
